FAERS Safety Report 24026129 (Version 2)
Quarter: 2024Q3

REPORT INFORMATION
  Report Type: Report from Study
  Country: EG (occurrence: EG)
  Receive Date: 20240628
  Receipt Date: 20240802
  Transmission Date: 20241016
  Serious: Yes (Life-Threatening, Disabling)
  Sender: ROCHE
  Company Number: EG-002147023-NVSC2024EG130777

PATIENT
  Age: 41 Year
  Sex: Female
  Weight: 82 kg

DRUGS (7)
  1. XOLAIR [Suspect]
     Active Substance: OMALIZUMAB
     Indication: Asthma
     Dosage: UNK
     Route: 050
     Dates: start: 202401, end: 20240416
  2. XOLAIR [Suspect]
     Active Substance: OMALIZUMAB
     Dosage: UNK
     Route: 050
     Dates: end: 20240622
  3. XOLAIR [Suspect]
     Active Substance: OMALIZUMAB
     Dosage: UNK
     Route: 050
     Dates: start: 20240627
  4. XOLAIR [Suspect]
     Active Substance: OMALIZUMAB
     Dosage: UNK
     Route: 050
  5. LELIPEL [Concomitant]
     Indication: Asthma
     Dosage: 1 DOSAGE FORM, QD
     Route: 050
     Dates: start: 20240609
  6. MONTELUKAST SODIUM [Concomitant]
     Active Substance: MONTELUKAST SODIUM
     Indication: Asthma
     Dosage: 1 DOSAGE FORM, QD
     Route: 050
     Dates: start: 20240609
  7. VENTAL [Concomitant]
     Indication: Asthma
     Dosage: 1 DOSAGE FORM, Q12H (ONE PUFF)
     Route: 050
     Dates: start: 202406, end: 202406

REACTIONS (14)
  - Asthma [Not Recovered/Not Resolved]
  - Symptom recurrence [Not Recovered/Not Resolved]
  - Depressed mood [Recovering/Resolving]
  - Tension [Not Recovered/Not Resolved]
  - Anger [Not Recovered/Not Resolved]
  - Headache [Not Recovered/Not Resolved]
  - Fatigue [Not Recovered/Not Resolved]
  - Confusional state [Not Recovered/Not Resolved]
  - Nervousness [Not Recovered/Not Resolved]
  - Pain [Not Recovered/Not Resolved]
  - Gait disturbance [Not Recovered/Not Resolved]
  - Blood immunoglobulin E increased [Unknown]
  - Drug ineffective [Unknown]
  - Off label use [Unknown]
